FAERS Safety Report 9392069 (Version 2)
Quarter: 2013Q4

REPORT INFORMATION
  Report Type: Spontaneous
  Country: US (occurrence: US)
  Receive Date: 20130709
  Receipt Date: 20131010
  Transmission Date: 20140711
  Serious: Yes (Hospitalization, Other)
  Sender: FDA-Public Use
  Company Number: US-UCBSA-090912

PATIENT
  Age: 52 Year
  Sex: Male
  Weight: 59 kg

DRUGS (28)
  1. KEPPRA [Suspect]
     Indication: CONVULSION
     Dosage: STRENGTH: 1000 MG, TABLETS NOT CRUSHED
     Route: 048
     Dates: start: 20130402
  2. KEPPRA [Suspect]
     Indication: CONVULSION
     Dosage: CRUSHED IN APPLE JUICE, DOSE: UNKNOWN
     Route: 048
     Dates: start: 201303, end: 20130401
  3. KEPPRA [Suspect]
     Indication: CONVULSION
     Dosage: LIQUID, VIA FEEDING TUBE
     Route: 048
     Dates: start: 201301, end: 201303
  4. LIPITOR [Concomitant]
     Indication: HYPERCHOLESTEROLAEMIA
     Dosage: DAILY DOSE: 20 MG
     Route: 048
  5. DUONEB [Concomitant]
     Dosage: UNKNOWN DOSE, FOUR TIMES A DAY
  6. ARICEPT [Concomitant]
     Dosage: DAILY DOSE: 5 MG
  7. ARICEPT [Concomitant]
     Route: 048
  8. ATIVAN [Concomitant]
     Dosage: DOSE: 0.5 MG THREE TIMES A DAY, AS NEEDED
  9. BABY ASPIRIN [Concomitant]
     Indication: CARDIAC DISORDER
     Dosage: DAILY DOSE: 81 MG
     Route: 048
  10. COLACE [Concomitant]
     Dosage: DOSE: 250 TWICE A DAY, AS NEEDED
  11. CARVEDILOL [Concomitant]
  12. DEPAKENE [Concomitant]
  13. DEPAKENE [Concomitant]
  14. METFORMIN [Concomitant]
     Dosage: DAILY DOSE: 500 MG
     Dates: start: 2013
  15. LEVAQUIN [Concomitant]
     Dosage: DAILY DOSE: 500 MG
  16. METAMUCIL [Concomitant]
     Dosage: DOSE: 1 PACK DAILY
  17. NAMENDA [Concomitant]
     Dosage: DAILY DOSE: 5 MG
  18. NAMENDA [Concomitant]
     Route: 048
  19. PEPCID [Concomitant]
     Dosage: DAILY DOSE: 20 MG
  20. TYLENOL [Concomitant]
     Dosage: AS NEEDED
  21. LOSARTAN [Concomitant]
     Dosage: UNKNOWN DOSE
     Dates: end: 2013
  22. DILANTIN [Concomitant]
     Dosage: UNKNOWN DOSE
  23. ZOLOFT [Concomitant]
     Dosage: UNKNOWN DOSE
  24. SEROQUEL [Concomitant]
     Dosage: UNKNOWN DOSE, AT NIGHT
  25. PROAMATINE [Concomitant]
     Dosage: UNKNOWN DOSE
  26. VALPROIC ACID [Concomitant]
  27. DEPAKOTE [Concomitant]
     Indication: CONVULSION
     Route: 048
  28. EFFIENT [Concomitant]
     Route: 048

REACTIONS (4)
  - Fall [Unknown]
  - Blood pressure decreased [Recovered/Resolved]
  - Dyskinesia [Unknown]
  - Medication error [Unknown]
